FAERS Safety Report 19082332 (Version 1)
Quarter: 2021Q2

REPORT INFORMATION
  Report Type: Spontaneous
  Country: IT (occurrence: IT)
  Receive Date: 20210401
  Receipt Date: 20210401
  Transmission Date: 20210717
  Serious: Yes (Other)
  Sender: FDA-Public Use
  Company Number: IT-TEVA-2021-IT-1895584

PATIENT
  Age: 47 Year
  Sex: Male

DRUGS (5)
  1. PEMBROLIZUMAB. [Suspect]
     Active Substance: PEMBROLIZUMAB
     Indication: PITUITARY TUMOUR BENIGN
     Dosage: FLAT DOSE
     Route: 065
  2. L?THYROXINE [Concomitant]
     Active Substance: LEVOTHYROXINE
     Indication: HORMONE THERAPY
     Route: 065
  3. TESTOSTERONE. [Concomitant]
     Active Substance: TESTOSTERONE
     Indication: HORMONE THERAPY
     Route: 065
  4. TEMOZOLOMIDE. [Suspect]
     Active Substance: TEMOZOLOMIDE
     Indication: SECRETORY ADENOMA OF PITUITARY
     Dosage: DAY 1?5 EVERY 28 DAYS FOR THE FIRST CYCLE
     Route: 065
  5. TEMOZOLOMIDE. [Suspect]
     Active Substance: TEMOZOLOMIDE
     Indication: SECRETORY ADENOMA OF PITUITARY
     Dosage: DAY 1?5 EVERY 28 DAYS FROM THE SECOND CYCLE ONWARDS
     Route: 065

REACTIONS (2)
  - Pituitary-dependent Cushing^s syndrome [Recovered/Resolved]
  - Off label use [Unknown]
